FAERS Safety Report 12816173 (Version 1)
Quarter: 2016Q4

REPORT INFORMATION
  Report Type: Spontaneous
  Country: US (occurrence: US)
  Receive Date: 20161005
  Receipt Date: 20161005
  Transmission Date: 20170207
  Serious: No
  Sender: FDA-Public Use
  Company Number: US-AMGEN-USASP2015117745

PATIENT
  Age: 86 Year
  Sex: Male
  Weight: 73 kg

DRUGS (1)
  1. PROLIA [Suspect]
     Active Substance: DENOSUMAB
     Indication: SENILE OSTEOPOROSIS
     Dosage: 60 MG, Q6MO
     Route: 058
     Dates: start: 20131120

REACTIONS (8)
  - Back pain [Unknown]
  - Body height decreased [Unknown]
  - Impaired healing [Unknown]
  - Spinal pain [Unknown]
  - Alopecia [Unknown]
  - Injury [Unknown]
  - Sleep disorder [Unknown]
  - Abdominal pain [Unknown]
